FAERS Safety Report 9913630 (Version 3)
Quarter: 2014Q1

REPORT INFORMATION
  Report Type: Spontaneous
  Country: JP (occurrence: JP)
  Receive Date: 20140220
  Receipt Date: 20140311
  Transmission Date: 20141002
  Serious: Yes (Other)
  Sender: FDA-Public Use
  Company Number: JP-JNJFOC-20140201408

PATIENT
  Age: 47 Year
  Sex: Male

DRUGS (21)
  1. FINIBAX [Suspect]
     Indication: URINARY TRACT INFECTION
     Route: 041
     Dates: start: 20140111, end: 20140117
  2. FINIBAX [Suspect]
     Indication: URINARY TRACT INFECTION
     Dosage: 0.5 G 3 TIMES A DAY
     Route: 041
     Dates: start: 20131216, end: 20131225
  3. FINIBAX [Suspect]
     Indication: FEBRILE NEUTROPENIA
     Dosage: 0.5 G 3 TIMES A DAY
     Route: 041
     Dates: start: 20131216, end: 20131225
  4. FINIBAX [Suspect]
     Indication: FEBRILE NEUTROPENIA
     Route: 041
     Dates: start: 20140111, end: 20140117
  5. FINIBAX [Suspect]
     Indication: PYREXIA
     Route: 041
     Dates: start: 20140111, end: 20140117
  6. FINIBAX [Suspect]
     Indication: PYREXIA
     Dosage: 0.5 G 3 TIMES A DAY
     Route: 041
     Dates: start: 20131216, end: 20131225
  7. IFOMIDE [Suspect]
     Indication: EXTRANODAL NK/T-CELL LYMPHOMA, NASAL TYPE
     Route: 065
     Dates: start: 20131203, end: 20131225
  8. IFOMIDE [Suspect]
     Indication: EXTRANODAL NK/T-CELL LYMPHOMA, NASAL TYPE
     Route: 065
     Dates: start: 20140113, end: 20140115
  9. METHOTREXATE [Suspect]
     Indication: EXTRANODAL NK/T-CELL LYMPHOMA, NASAL TYPE
     Route: 041
     Dates: start: 20131203, end: 20131225
  10. METHOTREXATE [Suspect]
     Indication: EXTRANODAL NK/T-CELL LYMPHOMA, NASAL TYPE
     Route: 041
     Dates: start: 20140112, end: 20140112
  11. ETOPOSIDE [Suspect]
     Indication: EXTRANODAL NK/T-CELL LYMPHOMA, NASAL TYPE
     Route: 065
     Dates: start: 20131203, end: 20131225
  12. ETOPOSIDE [Suspect]
     Indication: EXTRANODAL NK/T-CELL LYMPHOMA, NASAL TYPE
     Route: 065
     Dates: start: 20140113, end: 20140115
  13. UROMITEXAN [Concomitant]
     Indication: CYSTITIS HAEMORRHAGIC
     Route: 041
     Dates: start: 20140113, end: 20140115
  14. URALYT [Concomitant]
     Indication: URINE URIC ACID ABNORMAL
     Route: 048
     Dates: start: 20140110, end: 20140115
  15. DIAMOX [Concomitant]
     Indication: POLYURIA
     Route: 048
     Dates: start: 20140110, end: 20140115
  16. CRAVIT [Concomitant]
     Indication: PROPHYLAXIS
     Route: 048
     Dates: start: 20140108, end: 20140111
  17. L-ASPARAGINASE [Concomitant]
     Route: 065
     Dates: start: 20131210, end: 20131222
  18. DEXAMETHASONE [Concomitant]
     Indication: EXTRANODAL NK/T-CELL LYMPHOMA, NASAL TYPE
     Route: 065
     Dates: start: 20140111
  19. DEXAMETHASONE [Concomitant]
     Indication: EXTRANODAL NK/T-CELL LYMPHOMA, NASAL TYPE
     Route: 065
     Dates: start: 20131203
  20. L-ASPARAGINASE [Concomitant]
     Indication: EXTRANODAL NK/T-CELL LYMPHOMA, NASAL TYPE
     Route: 065
     Dates: start: 20140111
  21. L-ASPARAGINASE [Concomitant]
     Indication: EXTRANODAL NK/T-CELL LYMPHOMA, NASAL TYPE
     Route: 065
     Dates: start: 20131203, end: 20131225

REACTIONS (4)
  - Liver disorder [Recovered/Resolved]
  - Liver disorder [Recovered/Resolved]
  - Neurogenic bladder [Recovered/Resolved]
  - Hallucination, auditory [Recovered/Resolved]
